FAERS Safety Report 24079791 (Version 3)
Quarter: 2024Q3

REPORT INFORMATION
  Report Type: Spontaneous
  Country: RU (occurrence: RU)
  Receive Date: 20240711
  Receipt Date: 20240722
  Transmission Date: 20241017
  Serious: Yes (Other)
  Sender: NOVARTIS
  Company Number: RU-002147023-NVSC2024RU141536

PATIENT
  Sex: Female

DRUGS (2)
  1. ASCIMINIB [Suspect]
     Active Substance: ASCIMINIB
     Indication: Chronic myeloid leukaemia
     Dosage: 400 MG, QD
     Route: 065
     Dates: start: 202111
  2. ASCIMINIB [Suspect]
     Active Substance: ASCIMINIB
     Indication: Philadelphia chromosome positive

REACTIONS (2)
  - Cytopenia [Unknown]
  - Hyperbilirubinaemia [Unknown]
